FAERS Safety Report 20932586 (Version 1)
Quarter: 2022Q2

REPORT INFORMATION
  Report Type: Spontaneous
  Country: US (occurrence: US)
  Receive Date: 20220608
  Receipt Date: 20220608
  Transmission Date: 20220721
  Serious: Yes (Other)
  Sender: FDA-Public Use
  Company Number: US-PFIZER INC-202200792691

PATIENT
  Age: 63 Year
  Sex: Male
  Weight: 72.57 kg

DRUGS (1)
  1. LIPITOR [Suspect]
     Active Substance: ATORVASTATIN CALCIUM
     Indication: Blood cholesterol
     Dosage: 40 MG, 1X/DAY
     Route: 048
     Dates: start: 2021

REACTIONS (2)
  - Aortic arteriosclerosis [Unknown]
  - Libido decreased [Not Recovered/Not Resolved]
